FAERS Safety Report 7794636-8 (Version None)
Quarter: 2011Q4

REPORT INFORMATION
  Report Type: 
  Country: None (occurrence: None)
  Receive Date: 20111004
  Receipt Date: 20110317
  Transmission Date: 20120403
  Serious: No
  Sender: FDA-Public Use
  Company Number: US-BAYER-2011-024630

PATIENT
  Age: 69 Year
  Sex: Male

DRUGS (15)
  1. ASPIRIN [Concomitant]
  2. NEURONTIN [Concomitant]
  3. LEVITRA [Suspect]
     Indication: ERECTILE DYSFUNCTION
     Dosage: 20 MG, PRN
     Route: 048
     Dates: start: 20090101
  4. AMOXICILLIN [Concomitant]
  5. GLIPIZIDE [Concomitant]
  6. PRAVACHOL [Concomitant]
  7. JANUVIA [Concomitant]
  8. PROGRAF [Concomitant]
  9. ATENOLOL [Concomitant]
  10. LASIX [Concomitant]
  11. PREDNISONE [Concomitant]
  12. DILTIAZEM HCL [Concomitant]
  13. AGGRENOX [Concomitant]
  14. MYCOPHENOLATE MOFETIL (CELLCEPT) [Concomitant]
  15. AMLODIPINE [Concomitant]

REACTIONS (1)
  - ERECTILE DYSFUNCTION [None]
